FAERS Safety Report 9495783 (Version 1)
Quarter: 2013Q3

REPORT INFORMATION
  Report Type: Spontaneous
  Country: CN (occurrence: CN)
  Receive Date: 20130903
  Receipt Date: 20130903
  Transmission Date: 20140515
  Serious: Yes (Hospitalization)
  Sender: FDA-Public Use
  Company Number: CN-ASTRAZENECA-2013SE65892

PATIENT
  Age: 24 Year
  Sex: Male

DRUGS (3)
  1. QUETIAPINE [Suspect]
     Indication: BIPOLAR DISORDER
     Route: 048
     Dates: start: 201308, end: 201308
  2. CHLORPROMAZINE [Concomitant]
     Indication: BIPOLAR DISORDER
     Route: 048
     Dates: start: 201308
  3. LITHIUM CARBONATE [Concomitant]
     Indication: BIPOLAR DISORDER
     Route: 048
     Dates: start: 201308

REACTIONS (3)
  - Rash [Recovered/Resolved]
  - Drug ineffective [Unknown]
  - Bipolar disorder [Unknown]
